FAERS Safety Report 23111592 (Version 3)
Quarter: 2023Q4

REPORT INFORMATION
  Report Type: Spontaneous
  Country: US (occurrence: US)
  Receive Date: 20231026
  Receipt Date: 20231122
  Transmission Date: 20240110
  Serious: Yes (Other)
  Sender: FDA-Public Use
  Company Number: US-TEVA-2023-US-2937302

PATIENT
  Age: 27 Year
  Sex: Female

DRUGS (9)
  1. PREDNISONE [Suspect]
     Active Substance: PREDNISONE
     Indication: Immunosuppressant drug therapy
     Dosage: 10 MILLIGRAM DAILY;
     Route: 065
     Dates: start: 2006
  2. PREDNISONE [Suspect]
     Active Substance: PREDNISONE
     Dosage: 5 MILLIGRAM DAILY;
     Route: 065
  3. CELLCEPT [Suspect]
     Active Substance: MYCOPHENOLATE MOFETIL
     Indication: Immunosuppressant drug therapy
     Dosage: 720 MILLIGRAM DAILY; 360MG TWICE DAILY
     Route: 065
     Dates: start: 2006
  4. CALCIUM [Suspect]
     Active Substance: CALCIUM
     Indication: Mineral supplementation
     Route: 065
     Dates: start: 2006
  5. TACROLIMUS [Concomitant]
     Active Substance: TACROLIMUS
     Indication: Immunosuppressant drug therapy
     Dosage: 0.5 MG EVERY MORNING, 0.5-1 MG EVERY EVENING
     Route: 065
     Dates: start: 2006
  6. VITAMIN D NOS [Concomitant]
     Active Substance: VITAMIN D NOS
     Indication: Vitamin supplementation
     Route: 065
     Dates: start: 2006
  7. COUMADIN [Concomitant]
     Active Substance: WARFARIN SODIUM
     Indication: Pulmonary embolism
     Route: 065
  8. BUDESONIDE [Concomitant]
     Active Substance: BUDESONIDE
     Indication: Colitis ulcerative
     Route: 065
  9. ZOLEDRONIC ACID [Concomitant]
     Active Substance: ZOLEDRONIC ACID
     Indication: Osteoporosis
     Dosage: RECEIVED SINGLE DOSE
     Route: 065

REACTIONS (4)
  - Osteoporosis [Recovering/Resolving]
  - Impaired gastric emptying [Unknown]
  - Drug ineffective [Unknown]
  - Ankle fracture [Unknown]

NARRATIVE: CASE EVENT DATE: 20070101
